FAERS Safety Report 12220344 (Version 1)
Quarter: 2016Q1

REPORT INFORMATION
  Report Type: Report from Study
  Country: ES (occurrence: ES)
  Receive Date: 20160330
  Receipt Date: 20160330
  Transmission Date: 20160526
  Serious: Yes (Other)
  Sender: FDA-Public Use
  Company Number: ES-ACCORD-039112

PATIENT
  Sex: Male

DRUGS (1)
  1. METHOTREXATE [Suspect]
     Active Substance: METHOTREXATE
     Indication: ACUTE LYMPHOCYTIC LEUKAEMIA
     Dosage: ALSO RECEIVED 5 INTRATHECAL METHOTREXATE INJECTIONS 12 MG
     Route: 042

REACTIONS (4)
  - Somnolence [Recovered/Resolved]
  - Leukoencephalopathy [Recovered/Resolved]
  - Paresis cranial nerve [Recovered/Resolved]
  - Diplopia [Recovered/Resolved]
